FAERS Safety Report 7418127-9 (Version None)
Quarter: 2011Q2

REPORT INFORMATION
  Report Type: 
  Country: None (occurrence: None)
  Receive Date: 20110415
  Receipt Date: 20110411
  Transmission Date: 20111010
  Serious: Yes (Hospitalization)
  Sender: FDA-Public Use
  Company Number: GR-TEVA-275727ISR

PATIENT
  Sex: Male

DRUGS (14)
  1. AMLODIPINE BESYLATE [Concomitant]
     Indication: HYPERTENSION
     Dosage: 5 MILLIGRAM;
     Route: 048
     Dates: start: 20040101
  2. CLOPIDOGREL [Concomitant]
     Indication: MYOCARDIAL INFARCTION
     Dosage: 75 MILLIGRAM;
     Route: 048
     Dates: start: 20040101
  3. GOSERELIN [Concomitant]
     Indication: HORMONE THERAPY
     Dosage: .12 MILLIGRAM;
     Route: 058
     Dates: start: 20060201
  4. AMLODIPINE BESYLATE [Concomitant]
     Indication: CORONARY ARTERY STENOSIS
  5. OMEPRAZOLE [Concomitant]
     Indication: GASTROINTESTINAL DISORDER THERAPY
     Dosage: 20 MILLIGRAM;
     Route: 048
     Dates: start: 20091201
  6. CARVEDILOL [Concomitant]
     Route: 048
     Dates: start: 20040101
  7. ISOSORBIDE MONONITRATE [Concomitant]
     Indication: CORONARY ARTERY STENOSIS
  8. SODIUM CHLORIDE [Concomitant]
     Indication: HYPONATRAEMIA
     Route: 042
     Dates: start: 20101130
  9. PRAVASTATIN [Concomitant]
     Indication: HYPERCHOLESTEROLAEMIA
     Dosage: 40 MILLIGRAM;
     Route: 048
     Dates: start: 20040101
  10. PREDNISOLONE [Suspect]
     Indication: PROSTATE CANCER METASTATIC
     Route: 048
     Dates: start: 20091112
  11. GOSERELIN [Concomitant]
     Indication: PROSTATE CANCER
     Dosage: .12 MILLIGRAM;
     Route: 058
     Dates: start: 20091112
  12. ISOSORBIDE MONONITRATE [Concomitant]
     Indication: MYOCARDIAL INFARCTION
     Dosage: 60 MILLIGRAM;
     Route: 048
     Dates: start: 20040101
  13. PREDNISOLONE [Concomitant]
     Indication: ILL-DEFINED DISORDER
     Route: 048
  14. ABIRATERONE ACETATE- BLINDED (ABIRATERONE ACETATE) / PLACEBO [Suspect]
     Indication: PROSTATE CANCER METASTATIC
     Route: 048
     Dates: start: 20091112, end: 20101209

REACTIONS (1)
  - NEUTROPENIA [None]
